FAERS Safety Report 13685951 (Version 1)
Quarter: 2017Q2

REPORT INFORMATION
  Report Type: Spontaneous
  Country: US (occurrence: US)
  Receive Date: 20170623
  Receipt Date: 20170623
  Transmission Date: 20170830
  Serious: No
  Sender: FDA-Public Use
  Company Number: US-ROCHE-1112280

PATIENT
  Age: 68 Year
  Sex: Female

DRUGS (1)
  1. CELLCEPT [Suspect]
     Active Substance: MYCOPHENOLATE MOFETIL\MYCOPHENOLATE MOFETIL HYDROCHLORIDE
     Indication: INCLUSION BODY MYOSITIS
     Route: 065

REACTIONS (3)
  - Incorrect dose administered [Unknown]
  - Dysphagia [Unknown]
  - Drug ineffective [Unknown]
